FAERS Safety Report 5963577-0 (Version None)
Quarter: 2008Q4

REPORT INFORMATION
  Report Type: 
  Country: None (occurrence: None)
  Receive Date: 20081119
  Receipt Date: 20080908
  Transmission Date: 20090506
  Serious: No
  Sender: FDA-Public Use
  Company Number: WAES 0809USA01239

PATIENT
  Age: 81 Year
  Sex: Female

DRUGS (2)
  1. JANUVIA [Suspect]
     Indication: DIABETES MELLITUS
     Dosage: 50 MG DAILY PO
     Route: 048
     Dates: start: 20070101
  2. THERAPY UNSPECIFIED [Concomitant]

REACTIONS (1)
  - DRUG INEFFECTIVE [None]
